FAERS Safety Report 10668414 (Version 1)
Quarter: 2014Q4

REPORT INFORMATION
  Report Type: Spontaneous
  Country: JP (occurrence: JP)
  Receive Date: 20141222
  Receipt Date: 20141222
  Transmission Date: 20150529
  Serious: Yes (Death, Life-Threatening, Hospitalization, Other)
  Sender: FDA-Public Use
  Company Number: JP-BAYER-2014-182582

PATIENT
  Age: 28 Year
  Sex: Female
  Weight: 36 kg

DRUGS (19)
  1. AVELOX [Suspect]
     Active Substance: MOXIFLOXACIN HYDROCHLORIDE
     Indication: URINARY TRACT INFECTION
  2. CRAVIT [Suspect]
     Active Substance: LEVOFLOXACIN
     Indication: PNEUMONIA
     Dosage: 500 MG, QD
     Route: 041
     Dates: start: 20141110
  3. ISOPRINOSINE [Suspect]
     Active Substance: INOSINE PRANOBEX
     Indication: SUBACUTE SCLEROSING PANENCEPHALITIS
     Dosage: DAILY DOSE 1600 MG
     Route: 048
     Dates: start: 20140901
  4. BENZMARONE MITA [Suspect]
     Active Substance: BENZBROMARONE
     Indication: HYPERURICAEMIA
     Dosage: 50 MG, OM
     Route: 048
     Dates: start: 20140901
  5. ELECTROLYTES NOS W/MACROGOL 3350 [Concomitant]
     Indication: FLUID REPLACEMENT
     Dosage: 500 ML, QID
     Route: 042
     Dates: start: 20141110
  6. GLYCYRRHIZIC ACID [Concomitant]
     Active Substance: GLYCYRRHIZIN
     Indication: HEPATIC FUNCTION ABNORMAL
     Dosage: 40 ML, QD
     Route: 042
     Dates: start: 20141110
  7. ZITHROMAC [Suspect]
     Active Substance: AZITHROMYCIN DIHYDRATE
     Indication: PNEUMONIA
     Dosage: 500 MG, OM
     Route: 048
     Dates: start: 20141107, end: 20141109
  8. GASTER [Suspect]
     Active Substance: FAMOTIDINE
     Indication: GASTROOESOPHAGEAL REFLUX DISEASE
     Dosage: 20 MG, BID
     Route: 048
     Dates: start: 20140901
  9. ALEVIATIN [Suspect]
     Active Substance: PHENYTOIN SODIUM
     Indication: EPILEPSY
     Dosage: 70 MG, BID
     Route: 048
     Dates: start: 20140901
  10. SODIUM VALPROATE [Suspect]
     Active Substance: VALPROATE SODIUM
     Indication: EPILEPSY
     Dosage: 400 MG, BID
     Route: 048
     Dates: start: 20140901
  11. URSODEOXYCHOLIC ACID [Suspect]
     Active Substance: URSODIOL
     Indication: CHOLESTASIS
     Dosage: 100 MG, TID
     Route: 048
     Dates: start: 20140901
  12. GLUCOSE [Concomitant]
     Active Substance: DEXTROSE
     Dosage: 500 ML, QID
     Route: 042
     Dates: start: 20141110
  13. CEFTRIAXONE SODIUM. [Suspect]
     Active Substance: CEFTRIAXONE SODIUM
     Indication: PNEUMONIA
     Dosage: 1 G, QD
     Route: 041
     Dates: start: 20141110, end: 20141113
  14. CYSTEINE [Concomitant]
     Active Substance: CYSTEINE
     Indication: HEPATIC FUNCTION ABNORMAL
     Dosage: 40 ML, QD
     Route: 042
     Dates: start: 20141110
  15. MIYA-BM [Suspect]
     Active Substance: CLOSTRIDIUM BUTYRICUM SPORES STRAIN M-55
     Indication: CONSTIPATION
     Dosage: 2 DF, TID
     Route: 048
     Dates: start: 20140901
  16. URALYT-U [Suspect]
     Active Substance: POTASSIUM CITRATE\TRISODIUM CITRATE DIHYDRATE
     Indication: CALCULUS URINARY
     Dosage: 0.5 G, TID
     Route: 048
     Dates: start: 20140901
  17. AMINOACETIC ACID [Concomitant]
     Active Substance: GLYCINE
     Indication: HEPATIC FUNCTION ABNORMAL
     Dosage: 40 ML, QD
     Route: 042
     Dates: start: 20141110
  18. BFLUID [Concomitant]
     Active Substance: AMINO ACIDS\DEXTROSE\ELECTROLYTES NOS\VITAMINS
     Indication: FLUID REPLACEMENT
     Dosage: 500 ML, QID
     Route: 042
     Dates: start: 20141110
  19. AVELOX [Suspect]
     Active Substance: MOXIFLOXACIN HYDROCHLORIDE
     Indication: PNEUMONIA
     Dosage: 400 MG, OM
     Route: 048
     Dates: start: 20141028, end: 20141106

REACTIONS (6)
  - Jaundice [Recovered/Resolved with Sequelae]
  - Aspartate aminotransferase increased [Recovered/Resolved with Sequelae]
  - Alanine aminotransferase increased [Recovered/Resolved with Sequelae]
  - Cardiac failure acute [Fatal]
  - Acute kidney injury [Fatal]
  - Drug-induced liver injury [Fatal]

NARRATIVE: CASE EVENT DATE: 20141110
